FAERS Safety Report 17859959 (Version 3)
Quarter: 2020Q2

REPORT INFORMATION
  Report Type: Report from Study
  Country: CA (occurrence: CA)
  Receive Date: 20200604
  Receipt Date: 20200629
  Transmission Date: 20200714
  Serious: Yes (Other)
  Sender: FDA-Public Use
  Company Number: CA-HLS-202000660

PATIENT
  Age: 74 Year
  Sex: Female

DRUGS (1)
  1. CLOZARIL [Suspect]
     Active Substance: CLOZAPINE
     Route: 048
     Dates: start: 19990401

REACTIONS (3)
  - Physical disability [Unknown]
  - Cerebrovascular accident [Unknown]
  - Immunodeficiency [Unknown]
